FAERS Safety Report 23507240 (Version 1)
Quarter: 2024Q1

REPORT INFORMATION
  Report Type: Spontaneous
  Country: US (occurrence: US)
  Receive Date: 20240209
  Receipt Date: 20240209
  Transmission Date: 20240409
  Serious: No
  Sender: FDA-Public Use
  Company Number: US-BRISTOL-MYERS SQUIBB COMPANY-2024-021445

PATIENT
  Age: 72 Year
  Sex: Male
  Weight: 72.12 kg

DRUGS (1)
  1. REVLIMID [Suspect]
     Active Substance: LENALIDOMIDE
     Indication: Myelodysplastic syndrome
     Dosage: DAILY FOR 21DAYS
     Route: 048

REACTIONS (3)
  - Haemoglobin decreased [Unknown]
  - Peripheral swelling [Unknown]
  - Off label use [Unknown]
